FAERS Safety Report 13641946 (Version 2)
Quarter: 2017Q2

REPORT INFORMATION
  Report Type: Spontaneous
  Country: BE (occurrence: BE)
  Receive Date: 20170612
  Receipt Date: 20170621
  Transmission Date: 20170830
  Serious: Yes (Life-Threatening, Hospitalization, Other)
  Sender: FDA-Public Use
  Company Number: BE-AUROBINDO-AUR-APL-2017-31265

PATIENT
  Age: 62 Year
  Sex: Male

DRUGS (1)
  1. AMIODARONE [Suspect]
     Active Substance: AMIODARONE
     Indication: SINUS RHYTHM
     Dosage: 200 MG, UNK
     Route: 065

REACTIONS (11)
  - Palpitations [Recovered/Resolved]
  - Myalgia [Recovered/Resolved]
  - Angina pectoris [Recovered/Resolved]
  - Tremor [Recovered/Resolved]
  - Dyspnoea [Recovered/Resolved]
  - Fatigue [Recovered/Resolved]
  - Weight decreased [Recovered/Resolved]
  - Hyperthyroidism [Recovered/Resolved]
  - Asthenia [Recovered/Resolved]
  - Temperature intolerance [Recovered/Resolved]
  - Hyperhidrosis [Recovered/Resolved]
